FAERS Safety Report 11325539 (Version 1)
Quarter: 2015Q3

REPORT INFORMATION
  Report Type: Spontaneous
  Country: PE (occurrence: PE)
  Receive Date: 20150731
  Receipt Date: 20150731
  Transmission Date: 20151125
  Serious: Yes (Disabling)
  Sender: FDA-Public Use
  Company Number: PE-ROCHE-1616128

PATIENT
  Sex: Female

DRUGS (1)
  1. AVASTIN [Suspect]
     Active Substance: BEVACIZUMAB
     Indication: GLIOBLASTOMA
     Dosage: LAST APPLICATION PRIOR TO THE EVENT 23/JUL/2015
     Route: 065
     Dates: start: 20150625

REACTIONS (2)
  - Aphasia [Not Recovered/Not Resolved]
  - Abasia [Not Recovered/Not Resolved]
